FAERS Safety Report 10698560 (Version 1)
Quarter: 2014Q4

REPORT INFORMATION
  Report Type: Spontaneous
  Country: US (occurrence: None)
  Receive Date: 20141223
  Receipt Date: 20141223
  Transmission Date: 20150529
  Serious: No
  Sender: FDA-Public Use
  Company Number: 1000071159

PATIENT
  Age: 70 Year
  Sex: Female

DRUGS (2)
  1. LINZESS [Suspect]
     Active Substance: LINACLOTIDE
     Indication: IRRITABLE BOWEL SYNDROME
     Route: 048
     Dates: start: 20140925, end: 20140929
  2. LINZESS [Suspect]
     Active Substance: LINACLOTIDE
     Indication: CONSTIPATION
     Route: 048
     Dates: start: 20140925, end: 20140929

REACTIONS (4)
  - Muscle spasms [None]
  - Diarrhoea [None]
  - Abdominal pain [None]
  - Off label use [None]

NARRATIVE: CASE EVENT DATE: 20140925
